FAERS Safety Report 8566242-9 (Version None)
Quarter: 2012Q3

REPORT INFORMATION
  Report Type: 
  Country: None (occurrence: None)
  Receive Date: 20120803
  Receipt Date: 20110811
  Transmission Date: 20120928
  Serious: No
  Sender: FDA-Public Use
  Company Number: US-ABBOTT-11P-163-0845481-00

PATIENT
  Sex: Female
  Weight: 133.93 kg

DRUGS (9)
  1. NIASPAN [Suspect]
     Indication: BLOOD CHOLESTEROL
     Dates: end: 20110804
  2. VYTORIN [Concomitant]
     Indication: PRODUCT USED FOR UNKNOWN INDICATION
     Dosage: 10/80 MG
  3. PROGESTERONE [Concomitant]
     Indication: PRODUCT USED FOR UNKNOWN INDICATION
  4. VITAMIN D [Concomitant]
     Indication: PRODUCT USED FOR UNKNOWN INDICATION
  5. DHEA/PREG [Concomitant]
     Indication: PRODUCT USED FOR UNKNOWN INDICATION
     Dosage: 20/25
  6. METFORMIN HYDROCHLORIDE [Concomitant]
     Indication: PRODUCT USED FOR UNKNOWN INDICATION
  7. A-THYROID [Concomitant]
     Indication: PRODUCT USED FOR UNKNOWN INDICATION
  8. TRICOR [Suspect]
     Indication: BLOOD CHOLESTEROL
     Dates: start: 20080101
  9. ZOLOFT [Concomitant]
     Indication: PRODUCT USED FOR UNKNOWN INDICATION

REACTIONS (10)
  - TONGUE DISCOLOURATION [None]
  - PRURITUS [None]
  - PAIN [None]
  - RASH [None]
  - SKIN EXFOLIATION [None]
  - SWELLING [None]
  - BURNING SENSATION [None]
  - LIP SWELLING [None]
  - RASH PRURITIC [None]
  - SWELLING FACE [None]
